FAERS Safety Report 5476715-3 (Version None)
Quarter: 2007Q4

REPORT INFORMATION
  Report Type: 
  Country: None (occurrence: None)
  Receive Date: 20071004
  Receipt Date: 20070920
  Transmission Date: 20080405
  Serious: No
  Sender: FDA-Public Use
  Company Number: A0678879A

PATIENT
  Age: 71 Year
  Sex: Female

DRUGS (6)
  1. ADVAIR DISKUS 100/50 [Suspect]
     Indication: DRUG USE FOR UNKNOWN INDICATION
     Dosage: 2PUFF TWICE PER DAY
     Route: 055
     Dates: start: 20070825
  2. XOPENEX [Concomitant]
  3. ZOCOR [Concomitant]
  4. FOSAMAX [Concomitant]
  5. METOPROLOL [Concomitant]
  6. KLONOPIN [Concomitant]

REACTIONS (1)
  - ANXIETY [None]
